FAERS Safety Report 7435512-X (Version None)
Quarter: 2011Q2

REPORT INFORMATION
  Report Type: 
  Country: None (occurrence: None)
  Receive Date: 20110425
  Receipt Date: 20110414
  Transmission Date: 20111010
  Serious: Yes (Hospitalization, Other)
  Sender: FDA-Public Use
  Company Number: US-ASTRAZENECA-2011SE21928

PATIENT
  Age: 51 Year
  Sex: Male

DRUGS (1)
  1. SEROQUEL [Suspect]
     Route: 048

REACTIONS (8)
  - ARTHRALGIA [None]
  - TESTIS CANCER [None]
  - PAIN IN EXTREMITY [None]
  - BIPOLAR DISORDER [None]
  - OSTEOARTHRITIS [None]
  - PERIARTHRITIS [None]
  - BUNION OPERATION [None]
  - ATTENTION DEFICIT/HYPERACTIVITY DISORDER [None]
